FAERS Safety Report 17814096 (Version 3)
Quarter: 2020Q3

REPORT INFORMATION
  Report Type: Report from Study
  Country: US (occurrence: US)
  Receive Date: 20200521
  Receipt Date: 20200701
  Transmission Date: 20201102
  Serious: Yes (Hospitalization)
  Sender: FDA-Public Use
  Company Number: US-ACTELION-A-US2020-204509

PATIENT
  Sex: Female
  Weight: 68.03 kg

DRUGS (8)
  1. OXYGEN. [Concomitant]
     Active Substance: OXYGEN
     Dosage: 15 L
  2. AMLODIPINE [Concomitant]
     Active Substance: AMLODIPINE BESYLATE
  3. OXYGEN. [Concomitant]
     Active Substance: OXYGEN
     Dosage: 3?6 L
  4. TREPROSTINIL. [Suspect]
     Active Substance: TREPROSTINIL
     Indication: PRODUCT USED FOR UNKNOWN INDICATION
     Dosage: UNK
     Route: 042
     Dates: start: 202005
  5. OPSUMIT [Suspect]
     Active Substance: MACITENTAN
     Indication: PULMONARY ARTERIAL HYPERTENSION
     Dosage: 10 MG, QD
     Route: 048
  6. UPTRAVI [Suspect]
     Active Substance: SELEXIPAG
     Indication: PULMONARY ARTERIAL HYPERTENSION
     Dosage: 400 MCG, BID
     Route: 048
     Dates: end: 202005
  7. OXYGEN. [Concomitant]
     Active Substance: OXYGEN
     Dosage: 3?5 L
  8. TADALAFIL. [Concomitant]
     Active Substance: TADALAFIL

REACTIONS (12)
  - Headache [Unknown]
  - Fluid overload [Recovering/Resolving]
  - Condition aggravated [Unknown]
  - Nausea [Unknown]
  - Blood pressure increased [Unknown]
  - Retching [Unknown]
  - Therapy non-responder [Unknown]
  - Dyspnoea [Unknown]
  - Walking disability [Recovering/Resolving]
  - Hypoxia [Recovering/Resolving]
  - Appetite disorder [Unknown]
  - Dizziness [Unknown]
